FAERS Safety Report 8357692-4 (Version None)
Quarter: 2012Q2

REPORT INFORMATION
  Report Type: 
  Country: None (occurrence: None)
  Receive Date: 20120514
  Receipt Date: 20120503
  Transmission Date: 20120825
  Serious: Yes (Hospitalization)
  Sender: FDA-Public Use
  Company Number: FR-FRI-1000030464

PATIENT
  Age: 68 Year
  Sex: Female

DRUGS (11)
  1. CORDARONE [Suspect]
     Dates: start: 20091101, end: 20091101
  2. LASIX [Concomitant]
     Route: 048
  3. ISOPTIN [Concomitant]
     Route: 048
     Dates: start: 20091201
  4. ARIXTRA [Concomitant]
  5. XYZAL [Concomitant]
  6. AUGMENTIN [Concomitant]
  7. CITALOPRAM [Suspect]
     Dosage: 20 MG
  8. DIGOXIN [Suspect]
     Dosage: OVERDOSE NOS
  9. PULMICORT [Concomitant]
  10. SINGULAIR [Concomitant]
  11. IMOVANE [Concomitant]

REACTIONS (5)
  - BRADYCARDIA [None]
  - ELECTROCARDIOGRAM QT PROLONGED [None]
  - OVERDOSE [None]
  - TORSADE DE POINTES [None]
  - VENTRICULAR TACHYCARDIA [None]
